FAERS Safety Report 14587218 (Version 2)
Quarter: 2018Q2

REPORT INFORMATION
  Report Type: Spontaneous
  Country: US (occurrence: US)
  Receive Date: 20180301
  Receipt Date: 20180419
  Transmission Date: 20180711
  Serious: Yes (Other)
  Sender: FDA-Public Use
  Company Number: US-PFIZER INC-2018082611

PATIENT
  Age: 47 Year
  Sex: Female

DRUGS (2)
  1. HYOSCINE [Suspect]
     Active Substance: SCOPOLAMINE
     Indication: INCREASED BRONCHIAL SECRETION
     Dosage: 1.5 MG, UNK
     Route: 062
  2. METRONIDAZOLE. [Suspect]
     Active Substance: METRONIDAZOLE
     Indication: SKIN INFECTION
     Dosage: 500 MG, (EVERY 8 HOURS)
     Route: 042

REACTIONS (1)
  - Delirium [Recovered/Resolved]
